FAERS Safety Report 10673130 (Version 2)
Quarter: 2015Q1

REPORT INFORMATION
  Report Type: Report from Study
  Country: IT (occurrence: IT)
  Receive Date: 20141224
  Receipt Date: 20150114
  Transmission Date: 20150720
  Serious: Yes (Other)
  Sender: FDA-Public Use
  Company Number: IT-ROCHE-1513008

PATIENT

DRUGS (2)
  1. ALTEPLASE [Suspect]
     Active Substance: ALTEPLASE
     Indication: ISCHAEMIC STROKE
     Dosage: BOLUS
     Route: 042
  2. ALTEPLASE [Suspect]
     Active Substance: ALTEPLASE
     Indication: CAROTID ARTERY OCCLUSION
     Dosage: ADMINISTERED BY CONTINUOUS INTRAVENOUS INFUSION OVER A PERIOD OF 60 MIN
     Route: 042

REACTIONS (1)
  - Tongue oedema [Unknown]
